FAERS Safety Report 8032710-1 (Version None)
Quarter: 2011Q4

REPORT INFORMATION
  Report Type: 
  Country: None (occurrence: None)
  Receive Date: 20111202
  Receipt Date: 20101004
  Transmission Date: 20120403
  Serious: Yes (Other)
  Sender: FDA-Public Use
  Company Number: WAES 1011USA00800

PATIENT
  Age: 82 Year
  Sex: Female
  Weight: 53.0709 kg

DRUGS (1)
  1. FOSAMAX [Suspect]
     Indication: OSTEOPOROSIS
     Dosage: 70 MG/WKY/PO
     Route: 048
     Dates: start: 20060725, end: 20080901

REACTIONS (30)
  - OSTEONECROSIS OF JAW [None]
  - DRUG HYPERSENSITIVITY [None]
  - GINGIVAL BLEEDING [None]
  - TOOTH INFECTION [None]
  - SINUSITIS [None]
  - HYPOTHYROIDISM [None]
  - JAW DISORDER [None]
  - ALLERGY TO CHEMICALS [None]
  - SENSITIVITY OF TEETH [None]
  - EAR PAIN [None]
  - EXERCISE TOLERANCE DECREASED [None]
  - IMPAIRED HEALING [None]
  - ASTHENIA [None]
  - TOOTH ABSCESS [None]
  - HEADACHE [None]
  - TOOTH DISORDER [None]
  - ANXIETY [None]
  - MOUTH HAEMORRHAGE [None]
  - DEPRESSION [None]
  - STOMATITIS [None]
  - IRON DEFICIENCY ANAEMIA [None]
  - DYSPNOEA [None]
  - DIZZINESS [None]
  - UTERINE PROLAPSE [None]
  - RHEUMATOID ARTHRITIS [None]
  - PALATAL DISORDER [None]
  - BLOOD CHOLESTEROL [None]
  - PAIN [None]
  - DRY MOUTH [None]
  - INSOMNIA [None]
